FAERS Safety Report 7237629-1 (Version None)
Quarter: 2011Q1

REPORT INFORMATION
  Report Type: 
  Country: None (occurrence: None)
  Receive Date: 20110118
  Receipt Date: 20110106
  Transmission Date: 20110831
  Serious: Yes (Other)
  Sender: FDA-Public Use
  Company Number: 024954

PATIENT
  Sex: Female
  Weight: 53.978 kg

DRUGS (4)
  1. ARICEPT [Concomitant]
  2. CIMZIA [Suspect]
     Indication: RHEUMATOID ARTHRITIS
     Dosage: 400 MG 1X/MONTH SUBCUTANEOUS
     Route: 058
     Dates: start: 20100901, end: 20110104
  3. FLUOXETINE [Concomitant]
  4. MULTI-VITAMINS [Concomitant]

REACTIONS (2)
  - RASH MACULAR [None]
  - PSORIASIS [None]
